FAERS Safety Report 15229157 (Version 1)
Quarter: 2018Q3

REPORT INFORMATION
  Report Type: Spontaneous
  Country: US (occurrence: US)
  Receive Date: 20180801
  Receipt Date: 20180801
  Transmission Date: 20181010
  Serious: No
  Sender: FDA-Public Use
  Company Number: US-LEADING PHARMA-2053103

PATIENT
  Age: 75 Year
  Sex: Female

DRUGS (1)
  1. LORAZEPAM. [Suspect]
     Active Substance: LORAZEPAM
     Indication: MIXED CONNECTIVE TISSUE DISEASE
     Route: 048

REACTIONS (1)
  - Therapeutic response unexpected [Recovered/Resolved]
